FAERS Safety Report 5152403-8 (Version None)
Quarter: 2006Q4

REPORT INFORMATION
  Report Type: 
  Country: None (occurrence: None)
  Receive Date: 20061109
  Receipt Date: 20061002
  Transmission Date: 20070319
  Serious: Yes (Life-Threatening)
  Sender: FDA-Public Use
  Company Number: 200611207BNE

PATIENT
  Age: 15 Year
  Sex: Male
  Weight: 60 kg

DRUGS (11)
  1. CIPROFLOXACIN [Suspect]
     Indication: BRAIN ABSCESS
     Dosage: 300 MG, TOTAL DAILY, INTRAVENOUS
     Route: 042
     Dates: start: 20060326
  2. PENICILLIN G [Suspect]
     Indication: BRAIN ABSCESS
     Dosage: 3 G, QID, INTRAVENOUS
     Route: 042
     Dates: start: 20060301, end: 20060325
  3. CEFOTAXIME [Suspect]
     Indication: BRAIN ABSCESS
     Dosage: 3 G, TID, INTRAVENOUS
     Route: 042
     Dates: start: 20060303, end: 20060326
  4. METRONIDAZOLE [Suspect]
     Indication: BRAIN ABSCESS
     Dosage: 450 MG, TOTAL DAILY, INTRAVENOUS
     Route: 042
     Dates: start: 20060303, end: 20060326
  5. CODEINE PHOSPHATE [Concomitant]
  6. DEXAMETHASONE 4MG TAB [Concomitant]
  7. IBUPROFEN [Concomitant]
  8. ONDANSETRON [Concomitant]
  9. ACETAMINOPHEN [Concomitant]
  10. RANITIDINE [Concomitant]
  11. VITAMIN K [Concomitant]

REACTIONS (5)
  - BODY TEMPERATURE INCREASED [None]
  - HEART RATE INCREASED [None]
  - NAUSEA [None]
  - RASH [None]
  - VOMITING [None]
